FAERS Safety Report 26156925 (Version 1)
Quarter: 2025Q4

REPORT INFORMATION
  Report Type: Spontaneous
  Country: US (occurrence: US)
  Receive Date: 20251215
  Receipt Date: 20251215
  Transmission Date: 20260118
  Serious: Yes (Disabling)
  Sender: CYCLE PHARMACEUTICALS
  Company Number: US-CYCLE PHARMACEUTICALS LTD-2025-CYC-000171

PATIENT

DRUGS (1)
  1. TASCENSO ODT [Suspect]
     Active Substance: FINGOLIMOD LAURYL SULFATE
     Indication: Multiple sclerosis
     Dosage: 0.5 MG, QD (DAILY)
     Route: 048
     Dates: start: 20251012

REACTIONS (5)
  - Gait disturbance [Not Recovered/Not Resolved]
  - Visual impairment [Not Recovered/Not Resolved]
  - Asthenia [Not Recovered/Not Resolved]
  - Drug ineffective [Not Recovered/Not Resolved]
  - Fatigue [Unknown]

NARRATIVE: CASE EVENT DATE: 20251012
